FAERS Safety Report 18566013 (Version 1)
Quarter: 2020Q4

REPORT INFORMATION
  Report Type: Spontaneous
  Country: US (occurrence: US)
  Receive Date: 20201201
  Receipt Date: 20201201
  Transmission Date: 20210114
  Serious: Yes (Life-Threatening, Hospitalization)
  Sender: FDA-Public Use
  Company Number: US-EPIC PHARMA LLC-2020EPC00359

PATIENT
  Age: 56 Year
  Sex: Female

DRUGS (3)
  1. LEVETIRACETAM. [Concomitant]
     Active Substance: LEVETIRACETAM
     Indication: SEIZURE
     Route: 065
  2. METHADONE [Suspect]
     Active Substance: METHADONE HYDROCHLORIDE
     Indication: BACK PAIN
     Dosage: 2.4 G, ONCE
     Route: 048
  3. METHADONE [Suspect]
     Active Substance: METHADONE HYDROCHLORIDE
     Indication: DRUG DEPENDENCE
     Dosage: UNK
     Route: 065

REACTIONS (5)
  - Suicide attempt [Recovered/Resolved]
  - Cardiotoxicity [Recovered/Resolved]
  - Unresponsive to stimuli [Recovered/Resolved]
  - Overdose [Recovered/Resolved]
  - Ventricular dysfunction [Recovered/Resolved]
